FAERS Safety Report 4286150-1 (Version None)
Quarter: 2004Q1

REPORT INFORMATION
  Report Type: 
  Country: None (occurrence: None)
  Receive Date: 20040116
  Receipt Date: 20031126
  Transmission Date: 20041129
  Serious: Yes (Life-Threatening, Hospitalization, Other)
  Sender: FDA-Public Use
  Company Number: HQWYE317001DEC03

PATIENT
  Age: 23 Year
  Sex: Female
  Weight: 50 kg

DRUGS (1)
  1. PROTONIX [Suspect]
     Indication: ABDOMINAL DISCOMFORT
     Dosage: 40 MG 1X PER 1 DAY, INTRAVENOUS
     Route: 042
     Dates: start: 20030701, end: 20030731

REACTIONS (2)
  - DYSPNOEA [None]
  - RASH GENERALISED [None]
